FAERS Safety Report 8561045-3 (Version None)
Quarter: 2012Q3

REPORT INFORMATION
  Report Type: 
  Country: None (occurrence: None)
  Receive Date: 20120802
  Receipt Date: 20111006
  Transmission Date: 20120928
  Serious: No
  Sender: FDA-Public Use
  Company Number: US-BRISTOL-MYERS SQUIBB COMPANY-16140071

PATIENT
  Age: 37 Year

DRUGS (8)
  1. NORVIR [Concomitant]
  2. IRON [Concomitant]
     Route: 048
  3. MULTI-VITAMIN [Concomitant]
  4. ANTIVERT [Concomitant]
  5. DAPSONE [Concomitant]
  6. REYATAZ [Suspect]
     Dates: start: 20110913
  7. TRUVADA [Concomitant]
     Dosage: 1DF=200/300(UNITS NOT SPECIFIED).
  8. AZITHROMYCIN [Concomitant]

REACTIONS (1)
  - GYNAECOMASTIA [None]
